FAERS Safety Report 16959444 (Version 18)
Quarter: 2025Q1

REPORT INFORMATION
  Report Type: Spontaneous
  Country: CA (occurrence: CA)
  Receive Date: 20191025
  Receipt Date: 20250206
  Transmission Date: 20250408
  Serious: Yes (Hospitalization, Other)
  Sender: CELLTRION
  Company Number: CA-CELLTRION INC.-2019CA025816

PATIENT

DRUGS (21)
  1. INFLECTRA [Suspect]
     Active Substance: INFLIXIMAB-DYYB
     Indication: Crohn^s disease
     Route: 042
     Dates: start: 20190919
  2. INFLECTRA [Suspect]
     Active Substance: INFLIXIMAB-DYYB
     Route: 042
     Dates: start: 20191001
  3. INFLECTRA [Suspect]
     Active Substance: INFLIXIMAB-DYYB
     Route: 042
     Dates: start: 20191029, end: 20191029
  4. INFLECTRA [Suspect]
     Active Substance: INFLIXIMAB-DYYB
     Route: 042
     Dates: start: 20191224
  5. INFLECTRA [Suspect]
     Active Substance: INFLIXIMAB-DYYB
     Route: 042
     Dates: start: 20201118
  6. INFLECTRA [Suspect]
     Active Substance: INFLIXIMAB-DYYB
     Route: 042
     Dates: start: 20210327
  7. INFLECTRA [Suspect]
     Active Substance: INFLIXIMAB-DYYB
     Route: 042
     Dates: start: 20210520
  8. INFLECTRA [Suspect]
     Active Substance: INFLIXIMAB-DYYB
     Route: 042
     Dates: start: 20210708, end: 20210708
  9. INFLECTRA [Suspect]
     Active Substance: INFLIXIMAB-DYYB
     Route: 042
     Dates: start: 20210812, end: 20220908
  10. INFLECTRA [Suspect]
     Active Substance: INFLIXIMAB-DYYB
     Route: 042
     Dates: start: 20221006
  11. INFLECTRA [Suspect]
     Active Substance: INFLIXIMAB-DYYB
     Route: 042
     Dates: start: 20221229
  12. INFLECTRA [Suspect]
     Active Substance: INFLIXIMAB-DYYB
     Route: 042
     Dates: start: 20231207
  13. INFLECTRA [Suspect]
     Active Substance: INFLIXIMAB-DYYB
     Route: 042
     Dates: start: 20241128
  14. INFLECTRA [Suspect]
     Active Substance: INFLIXIMAB-DYYB
     Route: 042
     Dates: start: 20250123
  15. CIPROFLOXACIN [Concomitant]
     Active Substance: CIPROFLOXACIN
     Route: 048
     Dates: start: 2019
  16. FLAGYL [Concomitant]
     Active Substance: METRONIDAZOLE\METRONIDAZOLE HYDROCHLORIDE
     Route: 048
     Dates: start: 2019
  17. HYDROMORPHONE [Concomitant]
     Active Substance: HYDROMORPHONE
     Route: 065
  18. METRONIDAZOLE [Concomitant]
     Active Substance: METRONIDAZOLE
     Route: 048
     Dates: start: 2019
  19. PREDNISONE [Concomitant]
     Active Substance: PREDNISONE
     Route: 065
  20. SULFASALAZINE [Concomitant]
     Active Substance: SULFASALAZINE
     Route: 065
     Dates: start: 2002, end: 2011
  21. SULFASALAZINE [Concomitant]
     Active Substance: SULFASALAZINE
     Route: 048
     Dates: start: 201903

REACTIONS (14)
  - Anal fistula [Unknown]
  - Haemorrhage [Unknown]
  - Abscess intestinal [Recovering/Resolving]
  - Condition aggravated [Unknown]
  - Condition aggravated [Not Recovered/Not Resolved]
  - COVID-19 [Recovered/Resolved]
  - Pain [Recovered/Resolved]
  - Nasopharyngitis [Not Recovered/Not Resolved]
  - Fistula [Recovering/Resolving]
  - Anal fissure [Not Recovered/Not Resolved]
  - Abscess [Not Recovered/Not Resolved]
  - Off label use [Unknown]
  - Off label use [Unknown]
  - Intentional product use issue [Unknown]

NARRATIVE: CASE EVENT DATE: 20191029
